FAERS Safety Report 9548657 (Version 1)
Quarter: 2013Q2

REPORT INFORMATION
  Report Type: Spontaneous
  Country: TW (occurrence: None)
  Receive Date: 20130628
  Receipt Date: 20130628
  Transmission Date: 20140414
  Serious: Yes (Hospitalization)
  Sender: FDA-Public Use
  Company Number: 2013-01017

PATIENT
  Age: 18 Year
  Sex: Female

DRUGS (4)
  1. ZIPRASIDONE [Suspect]
     Indication: SCHIZOPHRENIA, PARANOID TYPE
     Route: 048
  2. AMISULPRIDE [Suspect]
     Indication: SCHIZOPHRENIA, PARANOID TYPE
     Route: 048
  3. ZOLPIDEM [Concomitant]
  4. ESTAZOLAM [Concomitant]

REACTIONS (1)
  - Dystonia [None]
